FAERS Safety Report 14255750 (Version 2)
Quarter: 2018Q1

REPORT INFORMATION
  Report Type: Report from Study
  Country: FR (occurrence: FR)
  Receive Date: 20171206
  Receipt Date: 20180110
  Transmission Date: 20180508
  Serious: Yes (Hospitalization, Other)
  Sender: FDA-Public Use
  Company Number: FR-GLAXOSMITHKLINE-FR2017GSK185637

PATIENT
  Age: 53 Year
  Sex: Male

DRUGS (4)
  1. INTELENCE [Suspect]
     Active Substance: ETRAVIRINE
     Indication: HIV INFECTION
     Dosage: UNK
     Dates: start: 201705, end: 20170731
  2. INTELENCE [Suspect]
     Active Substance: ETRAVIRINE
     Dosage: UNK
     Dates: start: 20140320, end: 20150731
  3. ABACAVIRSULPHATE+DOLUTEGRAVIR+LAMIVUDINE [Suspect]
     Active Substance: ABACAVIR SULFATE\DOLUTEGRAVIR SODIUM\LAMIVUDINE
     Dosage: UNK
     Dates: start: 20150731
  4. KIVEXA [Suspect]
     Active Substance: ABACAVIR SULFATE\LAMIVUDINE
     Indication: HIV INFECTION
     Dosage: UNK
     Dates: start: 20140320, end: 201502

REACTIONS (3)
  - Hemiparesis [Recovered/Resolved]
  - Thrombocytopenia [Recovered/Resolved]
  - Virologic failure [Unknown]

NARRATIVE: CASE EVENT DATE: 2015
